FAERS Safety Report 7598117-6 (Version None)
Quarter: 2011Q3

REPORT INFORMATION
  Report Type: 
  Country: None (occurrence: None)
  Receive Date: 20110708
  Receipt Date: 20110629
  Transmission Date: 20111222
  Serious: Yes (Life-Threatening)
  Sender: FDA-Public Use
  Company Number: CH-US-EMD SERONO, INC.-7038741

PATIENT
  Sex: Female

DRUGS (5)
  1. REBIF [Suspect]
     Indication: MULTIPLE SCLEROSIS
     Dates: start: 20101001, end: 20110126
  2. REBIF [Suspect]
     Dates: start: 20110404, end: 20110422
  3. REBIF [Suspect]
     Dates: start: 20110509, end: 20110525
  4. REBIF [Suspect]
     Dates: start: 20110425, end: 20110506
  5. GYSELLE [Concomitant]
     Indication: CONTRACEPTION
     Route: 048
     Dates: start: 20080101

REACTIONS (8)
  - WHITE BLOOD CELL COUNT ABNORMAL [None]
  - VIRAL INFECTION [None]
  - AUTOIMMUNE THROMBOCYTOPENIA [None]
  - INFECTION [None]
  - SERUM FERRITIN INCREASED [None]
  - THROMBOCYTOPENIA [None]
  - HAEMOGLOBIN DECREASED [None]
  - LYMPHOCYTE PERCENTAGE INCREASED [None]
